FAERS Safety Report 6296971-1 (Version None)
Quarter: 2009Q3

REPORT INFORMATION
  Report Type: 
  Country: None (occurrence: None)
  Receive Date: 20090804
  Receipt Date: 20090724
  Transmission Date: 20100115
  Serious: Yes (Other)
  Sender: FDA-Public Use
  Company Number: US-ELI_LILLY_AND_COMPANY-US200907005893

PATIENT
  Age: 57 Year
  Sex: Female

DRUGS (11)
  1. CYMBALTA [Suspect]
     Indication: HEADACHE
     Dosage: 60 MG, DAILY (1/D)
     Route: 048
     Dates: start: 20060101
  2. COPAXONE [Concomitant]
  3. INDERAL [Concomitant]
  4. LIPITOR [Concomitant]
  5. NIASPAN [Concomitant]
  6. ASPIRIN [Concomitant]
     Dosage: 81 MG, UNK
  7. CENESTIN [Concomitant]
  8. ADVAIR HFA [Concomitant]
  9. ALBUTEROL [Concomitant]
  10. POTASSIUM CHLORIDE [Concomitant]
  11. WATER PILLS [Concomitant]

REACTIONS (2)
  - MULTIPLE SCLEROSIS [None]
  - OFF LABEL USE [None]
